FAERS Safety Report 10043570 (Version 1)
Quarter: 2014Q1

REPORT INFORMATION
  Report Type: Spontaneous
  Country: US (occurrence: US)
  Receive Date: 20140328
  Receipt Date: 20140328
  Transmission Date: 20141002
  Serious: Yes (Other)
  Sender: FDA-Public Use
  Company Number: US-BAYER-2014-041948

PATIENT
  Age: 35 Year
  Sex: Female

DRUGS (2)
  1. BAYER GENUINE ASPIRIN ORIGINAL STRENGTH [Suspect]
     Indication: BACK PAIN
     Dosage: 2 TO 6 DF, UNK
     Route: 048
     Dates: start: 20140228, end: 20140301
  2. BAYER GENUINE ASPIRIN ORIGINAL STRENGTH [Suspect]
     Indication: ABDOMINAL PAIN

REACTIONS (2)
  - Gastric haemorrhage [Recovered/Resolved]
  - Vaginal haemorrhage [Recovered/Resolved]
